FAERS Safety Report 23344978 (Version 2)
Quarter: 2024Q1

REPORT INFORMATION
  Report Type: Report from Study
  Country: PT (occurrence: PT)
  Receive Date: 20231228
  Receipt Date: 20240106
  Transmission Date: 20240410
  Serious: Yes (Other)
  Sender: FDA-Public Use
  Company Number: PT-GILEAD-2023-0654423

PATIENT
  Age: 53 Year
  Sex: Female

DRUGS (4)
  1. DARUNAVIR [Suspect]
     Active Substance: DARUNAVIR
     Indication: HIV infection
     Dosage: UNK
     Route: 065
  2. EMTRICITABINE\TENOFOVIR [Suspect]
     Active Substance: EMTRICITABINE\TENOFOVIR
     Indication: HIV infection
     Dosage: UNK
     Route: 065
  3. RITONAVIR [Suspect]
     Active Substance: RITONAVIR
     Indication: HIV infection
     Dosage: UNK
     Route: 065
  4. TRUVADA [Suspect]
     Active Substance: EMTRICITABINE\TENOFOVIR DISOPROXIL FUMARATE
     Indication: HIV infection
     Dosage: UNK
     Route: 065

REACTIONS (6)
  - Autoimmune hepatitis [Recovering/Resolving]
  - Liver injury [Recovering/Resolving]
  - Thrombocytopenia [Recovering/Resolving]
  - Jaundice [Recovering/Resolving]
  - Liver disorder [Recovering/Resolving]
  - Prothrombin time prolonged [Recovering/Resolving]
